FAERS Safety Report 13800446 (Version 1)
Quarter: 2017Q3

REPORT INFORMATION
  Report Type: Spontaneous
  Country: US (occurrence: US)
  Receive Date: 20170727
  Receipt Date: 20170727
  Transmission Date: 20171127
  Serious: No
  Sender: FDA-Public Use
  Company Number: US-MYLANLABS-2016M1024175

PATIENT
  Age: 70 Year
  Sex: Female
  Weight: 79.37 kg

DRUGS (2)
  1. TESTOSTERONE. [Concomitant]
     Active Substance: TESTOSTERONE
     Dosage: UNK
  2. LEVOTHYROXINE. [Suspect]
     Active Substance: LEVOTHYROXINE
     Indication: HYPOTHYROIDISM
     Dosage: UNK, QD
     Route: 048
     Dates: start: 201401, end: 201409

REACTIONS (4)
  - Hypersensitivity [Recovered/Resolved]
  - Reaction to excipient [Recovered/Resolved]
  - Nervous system disorder [Recovered/Resolved]
  - Asthenia [Recovered/Resolved]

NARRATIVE: CASE EVENT DATE: 201409
